FAERS Safety Report 17366037 (Version 1)
Quarter: 2020Q1

REPORT INFORMATION
  Report Type: Report from Study
  Country: IT (occurrence: IT)
  Receive Date: 20200204
  Receipt Date: 20200204
  Transmission Date: 20200409
  Serious: Yes (Hospitalization)
  Sender: FDA-Public Use
  Company Number: IT-MYLANLABS-2020M1011752

PATIENT
  Age: 71 Year
  Sex: Female

DRUGS (3)
  1. TRASTUZUMAB. [Suspect]
     Active Substance: TRASTUZUMAB
     Indication: BREAST CANCER
     Dosage: Q3W - EVERY 3 WEEKS
     Route: 041
     Dates: start: 20190311
  2. PACLITAXEL. [Suspect]
     Active Substance: PACLITAXEL
     Indication: BREAST CANCER
     Dosage: Q3W - EVERY 3 WEEKS
     Route: 042
     Dates: start: 20190311
  3. PERTUZUMAB. [Suspect]
     Active Substance: PERTUZUMAB
     Indication: BREAST CANCER
     Dosage: Q3W - EVERY 3 WEEKS
     Route: 058
     Dates: start: 20190311

REACTIONS (2)
  - Hyperpyrexia [Recovered/Resolved]
  - Mucosal inflammation [Recovered/Resolved]

NARRATIVE: CASE EVENT DATE: 20190718
